FAERS Safety Report 21173346 (Version 2)
Quarter: 2022Q3

REPORT INFORMATION
  Report Type: Spontaneous
  Country: PL (occurrence: PL)
  Receive Date: 20220804
  Receipt Date: 20220819
  Transmission Date: 20221027
  Serious: Yes (Hospitalization, Other)
  Sender: FDA-Public Use
  Company Number: PL-TEVA-2022-PL-2060158

PATIENT
  Age: 36 Year
  Sex: Female

DRUGS (15)
  1. MYCOPHENOLATE MOFETIL [Suspect]
     Active Substance: MYCOPHENOLATE MOFETIL
     Indication: Immunosuppressant drug therapy
     Dosage: 500 MILLIGRAM DAILY; TWICE A DAY
     Route: 065
     Dates: start: 2005
  2. TACROLIMUS [Suspect]
     Active Substance: TACROLIMUS
     Indication: Immunosuppressant drug therapy
     Dosage: 5 MILLIGRAM DAILY;
     Route: 065
     Dates: start: 2005, end: 2021
  3. TACROLIMUS [Suspect]
     Active Substance: TACROLIMUS
     Dosage: 6 MILLIGRAM DAILY;
     Route: 065
     Dates: start: 2021, end: 2021
  4. TACROLIMUS [Suspect]
     Active Substance: TACROLIMUS
     Dosage: 7 MILLIGRAM DAILY;
     Route: 065
     Dates: start: 2021, end: 2021
  5. TACROLIMUS [Suspect]
     Active Substance: TACROLIMUS
     Dosage: 10 MILLIGRAM DAILY; TWICE A DAY
     Route: 065
     Dates: start: 2021
  6. PREDNISOLONE [Suspect]
     Active Substance: PREDNISOLONE
     Indication: Immunosuppressant drug therapy
     Route: 065
     Dates: start: 2005
  7. PREDNISOLONE [Suspect]
     Active Substance: PREDNISOLONE
     Route: 065
     Dates: start: 2021
  8. AZATHIOPRINE [Suspect]
     Active Substance: AZATHIOPRINE
     Indication: Immunosuppressant drug therapy
     Route: 065
  9. OXALIPLATIN [Suspect]
     Active Substance: OXALIPLATIN
     Indication: Adenocarcinoma gastric
     Dosage: FIRST CYCLE
     Route: 065
     Dates: start: 20210317, end: 20210319
  10. OXALIPLATIN [Suspect]
     Active Substance: OXALIPLATIN
     Dosage: SECOND CYCLE
     Route: 065
     Dates: start: 20210401
  11. LEUCOVORIN [Suspect]
     Active Substance: LEUCOVORIN
     Indication: Adenocarcinoma gastric
     Dosage: FIRST CYCLE
     Route: 065
     Dates: start: 20210317, end: 20210319
  12. LEUCOVORIN [Suspect]
     Active Substance: LEUCOVORIN
     Dosage: SECOND CYCLE
     Route: 065
     Dates: start: 20210401
  13. FLUOROURACIL [Suspect]
     Active Substance: FLUOROURACIL
     Indication: Adenocarcinoma gastric
     Dosage: FIRST CYCLE
     Route: 065
     Dates: start: 20210317, end: 20210319
  14. FLUOROURACIL [Suspect]
     Active Substance: FLUOROURACIL
     Dosage: SECOND CYCLE
     Route: 065
     Dates: start: 20210401
  15. EVEROLIMUS [Suspect]
     Active Substance: EVEROLIMUS
     Indication: Immunosuppressant drug therapy
     Dosage: TWICE A DAY
     Route: 065
     Dates: start: 2021, end: 2021

REACTIONS (6)
  - Adenocarcinoma of colon [Unknown]
  - Gastric disorder [Unknown]
  - Complications of transplanted kidney [Not Recovered/Not Resolved]
  - Renal transplant failure [Not Recovered/Not Resolved]
  - Maternal exposure during pregnancy [Unknown]
  - Live birth [Unknown]

NARRATIVE: CASE EVENT DATE: 20210101
